FAERS Safety Report 24224061 (Version 16)
Quarter: 2025Q3

REPORT INFORMATION
  Report Type: Spontaneous
  Country: US (occurrence: US)
  Receive Date: 20240819
  Receipt Date: 20250728
  Transmission Date: 20251020
  Serious: No
  Sender: PFIZER
  Company Number: US-PFIZER INC-PV202400107012

PATIENT
  Age: 79 Year
  Sex: Female

DRUGS (7)
  1. TUKYSA [Suspect]
     Active Substance: TUCATINIB
     Indication: Breast cancer female
     Dosage: TUKYSA 150MG; 2 TABLETS TWICE DAILY
  2. TUKYSA [Suspect]
     Active Substance: TUCATINIB
     Dates: start: 20240907
  3. TUKYSA [Suspect]
     Active Substance: TUCATINIB
     Dosage: TAKE TWO 150MG TABLETS EVERY MORNING, DAILY
     Route: 048
  4. TUKYSA [Suspect]
     Active Substance: TUCATINIB
     Dosage: TAKE TWO 150MG TABLETS BY MOUTH TWICE DAILY
     Route: 048
  5. XELODA [Concomitant]
     Active Substance: CAPECITABINE
     Indication: Breast cancer female
  6. XELODA [Concomitant]
     Active Substance: CAPECITABINE
     Dates: start: 20240907
  7. FUROSEMIDE [Concomitant]
     Active Substance: FUROSEMIDE

REACTIONS (12)
  - Palmar-plantar erythrodysaesthesia syndrome [Recovered/Resolved]
  - Illness [Unknown]
  - COVID-19 [Unknown]
  - Memory impairment [Unknown]
  - Pain in extremity [Unknown]
  - Somnolence [Unknown]
  - Middle insomnia [Unknown]
  - Insomnia [Unknown]
  - Nausea [Unknown]
  - Oropharyngeal discomfort [Unknown]
  - Brain fog [Unknown]
  - Off label use [Unknown]

NARRATIVE: CASE EVENT DATE: 20240501
